FAERS Safety Report 20512318 (Version 1)
Quarter: 2022Q1

REPORT INFORMATION
  Report Type: Spontaneous
  Country: US (occurrence: US)
  Receive Date: 20220224
  Receipt Date: 20220224
  Transmission Date: 20220423
  Serious: Yes (Other)
  Sender: FDA-Public Use
  Company Number: US-NOVARTISPH-NVSC2022US038444

PATIENT

DRUGS (2)
  1. ADAKVEO [Suspect]
     Active Substance: CRIZANLIZUMAB-TMCA
     Indication: Sickle cell disease
     Dosage: UNK
     Route: 041
  2. ADAKVEO [Suspect]
     Active Substance: CRIZANLIZUMAB-TMCA
     Dosage: 300 MG, (2ND INFUSION, 15 MIN INTO INFUSION)
     Route: 041

REACTIONS (6)
  - Brain injury [Unknown]
  - Acute chest syndrome [Unknown]
  - Cerebral artery embolism [Unknown]
  - Infusion related reaction [Unknown]
  - Pain [Unknown]
  - Hypertension [Unknown]
